FAERS Safety Report 14170170 (Version 1)
Quarter: 2017Q4

REPORT INFORMATION
  Report Type: Report from Study
  Country: CZ (occurrence: CZ)
  Receive Date: 20171108
  Receipt Date: 20171108
  Transmission Date: 20180321
  Serious: Yes (Hospitalization)
  Sender: FDA-Public Use
  Company Number: PHHO2016CZ018098

PATIENT
  Age: 62 Year
  Sex: Female
  Weight: 91.3 kg

DRUGS (11)
  1. GLUCOPHAGE [Concomitant]
     Active Substance: METFORMIN HYDROCHLORIDE
     Indication: TYPE 2 DIABETES MELLITUS
     Dosage: 2000 MG, QD
     Route: 065
     Dates: start: 2007, end: 20161102
  2. PENTOMER [Concomitant]
     Indication: ARTERIOSCLEROSIS
     Dosage: 400 MG, QD
     Route: 065
     Dates: start: 20160614
  3. BETALOC ZOK [Concomitant]
     Active Substance: METOPROLOL SUCCINATE
     Indication: CORONARY ARTERY DISEASE
     Dosage: 50 MG, QD
     Route: 065
     Dates: start: 20130621
  4. ACZ885 [Suspect]
     Active Substance: CANAKINUMAB
     Indication: CARDIOVASCULAR EVENT PROPHYLAXIS
     Dosage: 150 MG, QUARTERLY
     Route: 058
     Dates: start: 20131204, end: 20160908
  5. NEURONTIN [Concomitant]
     Active Substance: GABAPENTIN
     Indication: POLYNEUROPATHY
     Dosage: 30 MG, QD
     Route: 065
     Dates: start: 20160113
  6. HUMALOG [Concomitant]
     Active Substance: INSULIN LISPRO
     Dosage: 24/12 Q24D
     Route: 065
     Dates: start: 20161103
  7. ROSUMOP [Concomitant]
     Indication: DYSLIPIDAEMIA
     Dosage: 40 MG, QD
     Route: 065
     Dates: start: 20130621
  8. AFITEN [Concomitant]
     Indication: HYPERTENSION
     Dosage: 10 MG, QD
     Route: 065
     Dates: start: 20130621, end: 20161102
  9. HUMALOG [Concomitant]
     Active Substance: INSULIN LISPRO
     Indication: TYPE 2 DIABETES MELLITUS
     Dosage: 32/2 Q24D
     Route: 065
     Dates: start: 2007, end: 20161102
  10. ANOPYRIN [Concomitant]
     Active Substance: ASPIRIN
     Indication: CORONARY ARTERY DISEASE
     Dosage: 100 MG, QD
     Route: 065
     Dates: start: 20130621
  11. VIPIDIA [Concomitant]
     Active Substance: ALOGLIPTIN BENZOATE
     Indication: TYPE 2 DIABETES MELLITUS
     Dosage: UNK
     Route: 065
     Dates: end: 20161102

REACTIONS (3)
  - Urinary tract infection [Recovered/Resolved]
  - Localised infection [Recovering/Resolving]
  - Diabetic complication [Recovered/Resolved]

NARRATIVE: CASE EVENT DATE: 20161101
